FAERS Safety Report 9559559 (Version 1)
Quarter: 2013Q3

REPORT INFORMATION
  Report Type: Spontaneous
  Country: FR (occurrence: FR)
  Receive Date: 20130927
  Receipt Date: 20130927
  Transmission Date: 20140515
  Serious: Yes (Life-Threatening)
  Sender: FDA-Public Use
  Company Number: FR-ROCHE-1281827

PATIENT
  Age: 77 Year
  Sex: Male

DRUGS (2)
  1. VALIUM [Suspect]
     Indication: DELIRIUM TREMENS
     Route: 048
     Dates: start: 20130913
  2. VALIUM [Suspect]
     Route: 042
     Dates: start: 20130914

REACTIONS (1)
  - Cardio-respiratory arrest [Recovered/Resolved]
